FAERS Safety Report 4992856-9 (Version None)
Quarter: 2006Q1

REPORT INFORMATION
  Report Type: 
  Country: None (occurrence: None)
  Receive Date: 20060315
  Receipt Date: 20060112
  Transmission Date: 20060701
  Serious: No
  Sender: FDA-Public Use
  Company Number: 2006RL000019

PATIENT
  Age: 30 Year
  Sex: Female
  Weight: 65.318 kg

DRUGS (2)
  1. OMACOR [Suspect]
     Dosage: 4 GM;QD;PO
     Route: 048
     Dates: start: 20051122, end: 20060112
  2. PRENATAL VITAMINS [Concomitant]

REACTIONS (4)
  - DYSGEUSIA [None]
  - NAUSEA [None]
  - RETCHING [None]
  - VOMITING PROJECTILE [None]
